FAERS Safety Report 24293527 (Version 1)
Quarter: 2024Q3

REPORT INFORMATION
  Report Type: Spontaneous
  Country: US (occurrence: None)
  Receive Date: 20240906
  Receipt Date: 20240906
  Transmission Date: 20241017
  Serious: No
  Sender: DOMPE FARMACEUTICI
  Company Number: US-FARMAPROD-202308-202401-0293

PATIENT
  Sex: Male

DRUGS (20)
  1. OXERVATE [Suspect]
     Active Substance: CENEGERMIN-BKBJ
     Indication: Neurotrophic keratopathy
     Route: 047
     Dates: start: 20231114
  2. MORPHINE SULFATE [Concomitant]
     Active Substance: MORPHINE SULFATE
  3. CARVEDILOL [Concomitant]
     Active Substance: CARVEDILOL
  4. VORICONAZOLE [Concomitant]
     Active Substance: VORICONAZOLE
  5. IRON [Concomitant]
     Active Substance: IRON
     Dosage: 159(45)MG EXTENDED RELEASE
  6. VITAMIN D3 [Concomitant]
     Active Substance: CHOLECALCIFEROL
  7. VITAMIN C [Concomitant]
     Active Substance: ASCORBIC ACID
  8. MAGNESIUM [Concomitant]
     Active Substance: MAGNESIUM
  9. PROBIOTICS NOS [Concomitant]
     Active Substance: PROBIOTICS NOS
     Dosage: 100 BILLION CELL
  10. LATANOPROST [Concomitant]
     Active Substance: LATANOPROST
  11. PREDNISOLONE-BROMFENAC [Concomitant]
  12. REFRESH CELLUVISC [Concomitant]
     Active Substance: CARBOXYMETHYLCELLULOSE SODIUM
     Dosage: DROPER GEL
  13. DORZOLAMIDE HYDROCHLORIDE [Concomitant]
     Active Substance: DORZOLAMIDE HYDROCHLORIDE
  14. MOXIFLOXACIN [Concomitant]
     Active Substance: MOXIFLOXACIN
  15. PIOGLITAZONE [Concomitant]
     Active Substance: PIOGLITAZONE
  16. METFORMIN HYDROCHLORIDE [Concomitant]
     Active Substance: METFORMIN HYDROCHLORIDE
  17. GLIPIZIDE [Concomitant]
     Active Substance: GLIPIZIDE
  18. GABAPENTIN [Concomitant]
     Active Substance: GABAPENTIN
  19. ACETAMINOPHEN\HYDROCODONE [Concomitant]
     Active Substance: ACETAMINOPHEN\HYDROCODONE
  20. POLYTRIM- LEFT EYE [Concomitant]

REACTIONS (1)
  - Therapy interrupted [Unknown]
